FAERS Safety Report 8588603-4 (Version None)
Quarter: 2012Q3

REPORT INFORMATION
  Report Type: 
  Country: None (occurrence: None)
  Receive Date: 20120803
  Receipt Date: 20120803
  Transmission Date: 20120928
  Serious: Yes (Other)
  Sender: FDA-Public Use
  Company Number: None

PATIENT
  Age: 52 Year
  Sex: Female

DRUGS (1)
  1. CEFTRIAXON [Suspect]
     Indication: SHOULDER OPERATION
     Dosage: 1GM NOW IV DRIP
     Route: 041
     Dates: start: 20120731, end: 20120731

REACTIONS (1)
  - VENTRICULAR EXTRASYSTOLES [None]
